FAERS Safety Report 4402044-2 (Version None)
Quarter: 2004Q3

REPORT INFORMATION
  Report Type: 
  Country: None (occurrence: None)
  Receive Date: 20040719
  Receipt Date: 20040719
  Transmission Date: 20050211
  Serious: Yes (Life-Threatening, Hospitalization)
  Sender: FDA-Public Use
  Company Number: None

PATIENT
  Age: 53 Year
  Sex: Female
  Weight: 100.2449 kg

DRUGS (18)
  1. CETACAINE TOP AEROSOL [Suspect]
     Indication: GASTROSTOMY TUBE INSERTION
     Dosage: 2 SPRAYS ONE TIME TOPICAL
     Route: 061
     Dates: start: 20040408, end: 20040408
  2. ACETAMINOPHEN AND HYDROCODONE BITARTRATE [Concomitant]
  3. ALBUTEROL [Concomitant]
  4. ASPIRIN [Concomitant]
  5. CLOPIDOGREL [Concomitant]
  6. HEPARIN [Concomitant]
  7. INSULIN HUMAN [Concomitant]
  8. SODIUM CHLORIDE INJ [Concomitant]
  9. IPRATROPIUM INHALANT [Concomitant]
  10. ISOSORBIDE [Concomitant]
  11. LISINOPRIL [Concomitant]
  12. LORAZEPAM [Concomitant]
  13. METOCLOPRAMIDE [Concomitant]
  14. CHLORIDE [Concomitant]
  15. MORPH [Concomitant]
  16. RANITIDINE [Concomitant]
  17. SERTRALINE HCL [Concomitant]
  18. SODIUM CHLORIDE INJ [Concomitant]

REACTIONS (1)
  - LARYNGEAL OEDEMA [None]
